FAERS Safety Report 12060823 (Version 1)
Quarter: 2016Q1

REPORT INFORMATION
  Report Type: Report from Study
  Country: US (occurrence: US)
  Receive Date: 20160210
  Receipt Date: 20160210
  Transmission Date: 20160526
  Serious: Yes (Other)
  Sender: FDA-Public Use
  Company Number: US-AMGEN-USASL2016013688

PATIENT
  Age: 73 Year
  Sex: Male

DRUGS (1)
  1. ENBREL [Suspect]
     Active Substance: ETANERCEPT
     Indication: RHEUMATOID ARTHRITIS
     Dosage: 50 MG, QWK
     Route: 065
     Dates: start: 20091008

REACTIONS (6)
  - Visual impairment [Unknown]
  - Herpes zoster [Unknown]
  - Musculoskeletal stiffness [Unknown]
  - Activities of daily living impaired [Unknown]
  - Rheumatoid arthritis [Unknown]
  - Deafness [Unknown]
